FAERS Safety Report 10281074 (Version 1)
Quarter: 2014Q3

REPORT INFORMATION
  Report Type: Report from Study
  Country: US (occurrence: US)
  Receive Date: 20140707
  Receipt Date: 20140707
  Transmission Date: 20150326
  Serious: Yes (Other)
  Sender: FDA-Public Use
  Company Number: US-BAXTER-2014BAX035945

PATIENT
  Age: 62 Year
  Sex: Male

DRUGS (1)
  1. GAMMAGARD LIQUID [Suspect]
     Active Substance: HUMAN IMMUNOGLOBULIN G
     Indication: PRODUCT USED FOR UNKNOWN INDICATION
     Route: 042
     Dates: start: 20140625

REACTIONS (6)
  - Fall [Unknown]
  - Migraine [Unknown]
  - Syncope [Unknown]
  - Laceration [Unknown]
  - Stress [Unknown]
  - Malaise [Unknown]

NARRATIVE: CASE EVENT DATE: 20140626
